FAERS Safety Report 8356050-6 (Version None)
Quarter: 2012Q2

REPORT INFORMATION
  Report Type: 
  Country: None (occurrence: None)
  Receive Date: 20120514
  Receipt Date: 20120510
  Transmission Date: 20120825
  Serious: No
  Sender: FDA-Public Use
  Company Number: US-PFIZER INC-2012114982

PATIENT
  Sex: Male
  Weight: 78.005 kg

DRUGS (6)
  1. PRISTIQ [Suspect]
     Indication: DEPRESSION
     Dosage: UNK, 1X/DAY
     Route: 048
     Dates: start: 20120507
  2. ALPRAZOLAM [Concomitant]
     Indication: NEUROPATHY PERIPHERAL
     Dosage: 0.5 MG, UNK
  3. FINASTERIDE [Concomitant]
     Indication: PROSTATE CANCER
     Dosage: 5 MG, 1X/DAY
  4. FISH OIL [Concomitant]
     Dosage: UNK
  5. RAMIPRIL [Concomitant]
     Indication: HYPERTENSION
     Dosage: 10 MG, UNK
  6. ACETYLSALICYLIC ACID [Concomitant]
     Dosage: UNK

REACTIONS (6)
  - DEPRESSION [None]
  - ABDOMINAL PAIN UPPER [None]
  - FEELING ABNORMAL [None]
  - DECREASED APPETITE [None]
  - INSOMNIA [None]
  - MALAISE [None]
